FAERS Safety Report 5491122-5 (Version None)
Quarter: 2007Q4

REPORT INFORMATION
  Report Type: 
  Country: None (occurrence: None)
  Receive Date: 20071019
  Receipt Date: 20071011
  Transmission Date: 20080405
  Serious: Yes (Other)
  Sender: FDA-Public Use
  Company Number: AU-PFIZER INC-2007077552

PATIENT
  Sex: Male
  Weight: 130 kg

DRUGS (9)
  1. ALDACTONE [Suspect]
     Indication: OEDEMA
     Route: 048
  2. LIPITOR [Suspect]
     Indication: HYPERLIPIDAEMIA
     Dosage: DAILY DOSE:20MG
     Route: 048
  3. ATACAND [Concomitant]
     Route: 048
  4. LASIX [Concomitant]
     Route: 048
  5. DILATREND [Concomitant]
     Route: 048
  6. ENDEP [Concomitant]
     Route: 048
  7. WARFARIN SODIUM [Concomitant]
     Route: 048
  8. ZYLOPRIM [Concomitant]
     Route: 048
  9. DIAFORMIN [Concomitant]
     Route: 048

REACTIONS (12)
  - ALCOHOL PROBLEM [None]
  - ANAEMIA [None]
  - CARDIAC FAILURE [None]
  - DYSPNOEA [None]
  - ENCEPHALOPATHY [None]
  - MITRAL VALVE INCOMPETENCE [None]
  - OEDEMA PERIPHERAL [None]
  - PNEUMONIA [None]
  - PULMONARY HYPERTENSION [None]
  - SLEEP APNOEA SYNDROME [None]
  - SURGERY [None]
  - TRICUSPID VALVE INCOMPETENCE [None]
